FAERS Safety Report 19619124 (Version 1)
Quarter: 2021Q3

REPORT INFORMATION
  Report Type: Spontaneous
  Country: US (occurrence: US)
  Receive Date: 20210727
  Receipt Date: 20210727
  Transmission Date: 20211014
  Serious: No
  Sender: FDA-Public Use
  Company Number: US-ROCHE-2776915

PATIENT
  Age: 82 Year
  Sex: Female

DRUGS (1)
  1. XELODA [Suspect]
     Active Substance: CAPECITABINE
     Indication: PRODUCT USED FOR UNKNOWN INDICATION
     Route: 048
     Dates: start: 202101

REACTIONS (6)
  - Visual impairment [Not Recovered/Not Resolved]
  - Skin exfoliation [Unknown]
  - Alopecia [Unknown]
  - Rash erythematous [Unknown]
  - Dry skin [Unknown]
  - Paraesthesia [Unknown]

NARRATIVE: CASE EVENT DATE: 20210210
